FAERS Safety Report 21619914 (Version 1)
Quarter: 2022Q4

REPORT INFORMATION
  Report Type: Report from Study
  Country: US (occurrence: US)
  Receive Date: 20221121
  Receipt Date: 20221121
  Transmission Date: 20230112
  Serious: No
  Sender: FDA-Public Use
  Company Number: US-ABBVIE-4159157

PATIENT
  Age: 61 Year
  Sex: Male

DRUGS (1)
  1. HUMIRA [Suspect]
     Active Substance: ADALIMUMAB
     Indication: Colitis ulcerative
     Dosage: FORM STRENGTH: 40 MILLIGRAM
     Route: 058
     Dates: start: 20210915

REACTIONS (7)
  - Device issue [Unknown]
  - Insomnia [Unknown]
  - Abdominal distension [Unknown]
  - Constipation [Unknown]
  - Frequent bowel movements [Unknown]
  - Muscle spasms [Unknown]
  - Flatulence [Unknown]

NARRATIVE: CASE EVENT DATE: 20220901
